FAERS Safety Report 21944267 (Version 1)
Quarter: 2023Q1

REPORT INFORMATION
  Report Type: Report from Study
  Country: IT (occurrence: IT)
  Receive Date: 20230202
  Receipt Date: 20230202
  Transmission Date: 20230418
  Serious: Yes (Death)
  Sender: FDA-Public Use
  Company Number: IT-PFIZER INC-PV202300018706

PATIENT
  Age: 83 Year
  Sex: Male
  Weight: 64 kg

DRUGS (10)
  1. ENZALUTAMIDE [Suspect]
     Active Substance: ENZALUTAMIDE
     Indication: Prostate cancer
     Route: 048
     Dates: start: 20160527
  2. CANDESARTAN CILEXETIL [Concomitant]
     Active Substance: CANDESARTAN CILEXETIL
     Indication: Hypertensive heart disease
     Dosage: UNK UNK, DAILY
     Route: 048
     Dates: start: 2005, end: 20160621
  3. CANDESARTAN CILEXETIL [Concomitant]
     Active Substance: CANDESARTAN CILEXETIL
     Dosage: UNK UNK, UNKNOWN FREQ.
     Route: 048
     Dates: start: 20160622
  4. BISOPROLOL [Concomitant]
     Active Substance: BISOPROLOL
     Indication: Hypertensive heart disease
     Dosage: UNK UNK, DAILY
     Route: 048
     Dates: start: 20160622, end: 202109
  5. PERFALGAN [Concomitant]
     Active Substance: ACETAMINOPHEN
     Indication: Bladder disorder
     Dosage: UNK ML,DAILY
     Route: 042
     Dates: start: 20190709, end: 20190710
  6. NIFEDIPINE [Concomitant]
     Active Substance: NIFEDIPINE
     Indication: Hypertension
     Dosage: UNK ML,DAILY
     Route: 048
     Dates: start: 20190709, end: 20190710
  7. TRAMADOL HYDROCHLORIDE [Concomitant]
     Active Substance: TRAMADOL HYDROCHLORIDE
     Indication: Bladder disorder
     Dosage: UNK ML, DAILY
     Route: 042
     Dates: start: 20190709, end: 20190710
  8. ASPIRIN [Concomitant]
     Active Substance: ASPIRIN
     Indication: Arteriosclerosis
     Dosage: UNK MG, DAILY
     Route: 048
     Dates: start: 20200424
  9. ENOXAPARIN SODIUM [Concomitant]
     Active Substance: ENOXAPARIN SODIUM
     Indication: Bladder disorder
     Dosage: UNK IU, DAILY
     Route: 058
     Dates: start: 20190710, end: 20190716
  10. ONDANSETRON [Concomitant]
     Active Substance: ONDANSETRON
     Indication: Nausea
     Dosage: UNK ML, DAILY
     Route: 042
     Dates: start: 20190709, end: 20190710

REACTIONS (1)
  - Death [Fatal]

NARRATIVE: CASE EVENT DATE: 20230121
